FAERS Safety Report 4426103-3 (Version None)
Quarter: 2004Q3

REPORT INFORMATION
  Report Type: 
  Country: None (occurrence: None)
  Receive Date: 20040811
  Receipt Date: 20040728
  Transmission Date: 20050211
  Serious: Yes (Hospitalization)
  Sender: FDA-Public Use
  Company Number: 2004226775CO

PATIENT
  Age: 72 Year
  Sex: Female

DRUGS (3)
  1. BEXTRA [Suspect]
     Indication: TENDONITIS
     Dosage: 40 MG, QD, ORAL
     Route: 048
     Dates: start: 20040601
  2. CALCIUM [Concomitant]
  3. TOBRAMYCIN [Concomitant]

REACTIONS (4)
  - HYPERSENSITIVITY [None]
  - PHARYNGOLARYNGEAL PAIN [None]
  - THERAPY NON-RESPONDER [None]
  - TOXIC SKIN ERUPTION [None]
